FAERS Safety Report 10349607 (Version 1)
Quarter: 2014Q3

REPORT INFORMATION
  Report Type: Spontaneous
  Country: US (occurrence: None)
  Receive Date: 20140728
  Receipt Date: 20140728
  Transmission Date: 20150326
  Serious: Yes (Other)
  Sender: FDA-Public Use
  Company Number: None

PATIENT
  Age: 59 Year
  Sex: Female

DRUGS (9)
  1. LEVOTHYROXINE [Concomitant]
     Active Substance: LEVOTHYROXINE
  2. AMBIEN [Concomitant]
     Active Substance: ZOLPIDEM TARTRATE
  3. FLAGLY [Concomitant]
  4. ESTRADIOL. [Concomitant]
     Active Substance: ESTRADIOL
  5. LEVOFLOXACIN [Suspect]
     Active Substance: LEVOFLOXACIN
     Indication: DIVERTICULITIS
     Route: 048
     Dates: start: 20140719, end: 20140722
  6. VITAMIN D [Concomitant]
     Active Substance: CHOLECALCIFEROL
  7. HORCO [Concomitant]
  8. PANTOPRAZOLE [Concomitant]
     Active Substance: PANTOPRAZOLE SODIUM
  9. COMA [Concomitant]

REACTIONS (11)
  - Tremor [None]
  - Blood pressure decreased [None]
  - Dyspnoea [None]
  - Diarrhoea [None]
  - Dizziness [None]
  - Disorientation [None]
  - Chest discomfort [None]
  - Headache [None]
  - Vision blurred [None]
  - Photopsia [None]
  - Confusional state [None]

NARRATIVE: CASE EVENT DATE: 20140721
